FAERS Safety Report 17334533 (Version 1)
Quarter: 2020Q1

REPORT INFORMATION
  Report Type: Spontaneous
  Country: US (occurrence: US)
  Receive Date: 20200128
  Receipt Date: 20200128
  Transmission Date: 20200409
  Serious: No
  Sender: FDA-Public Use
  Company Number: US-PARATEK PHARMACEUTICALS, INC.-2019PTK00136

PATIENT
  Age: 76 Year
  Sex: Female

DRUGS (2)
  1. UNSPECIFIED ANTIBIOTICS [Concomitant]
     Active Substance: UNSPECIFIED INGREDIENT
     Dosage: UNK
  2. NUZYRA [Suspect]
     Active Substance: OMADACYCLINE
     Indication: PNEUMONIA
     Dosage: 300 MG, 1X/DAY
     Route: 048
     Dates: start: 20191115

REACTIONS (3)
  - Diarrhoea [Recovering/Resolving]
  - Weight fluctuation [Unknown]
  - Drug dose titration not performed [Not Recovered/Not Resolved]

NARRATIVE: CASE EVENT DATE: 201911
